FAERS Safety Report 11227066 (Version 1)
Quarter: 2015Q2

REPORT INFORMATION
  Report Type: Spontaneous
  Country: BR (occurrence: BR)
  Receive Date: 20150630
  Receipt Date: 20150630
  Transmission Date: 20150821
  Serious: Yes (Other)
  Sender: FDA-Public Use
  Company Number: BR-JNJFOC-20150620218

PATIENT
  Sex: Female

DRUGS (3)
  1. MEBEVERINE [Concomitant]
     Active Substance: MEBEVERINE
     Route: 065
  2. IMOSEC [Suspect]
     Active Substance: LOPERAMIDE
     Route: 065
  3. IMOSEC [Suspect]
     Active Substance: LOPERAMIDE
     Indication: IRRITABLE BOWEL SYNDROME
     Dosage: NIGHT HOURS
     Route: 065

REACTIONS (3)
  - Emotional disorder [Unknown]
  - Herpes virus infection [Unknown]
  - Inappropriate schedule of drug administration [Unknown]
